FAERS Safety Report 24824226 (Version 1)
Quarter: 2025Q1

REPORT INFORMATION
  Report Type: Spontaneous
  Country: US (occurrence: US)
  Receive Date: 20250109
  Receipt Date: 20250109
  Transmission Date: 20250409
  Serious: Yes (Hospitalization, Other)
  Sender: RANBAXY
  Company Number: US-SUN PHARMACEUTICAL INDUSTRIES LTD-2024R1-488076

PATIENT
  Age: 27 Year
  Sex: Female

DRUGS (1)
  1. ASPIRIN [Suspect]
     Active Substance: ASPIRIN
     Indication: Analgesic therapy
     Route: 065

REACTIONS (3)
  - Drug-induced liver injury [Unknown]
  - Overdose [Unknown]
  - Cholestasis [Unknown]
